FAERS Safety Report 12890946 (Version 2)
Quarter: 2016Q4

REPORT INFORMATION
  Report Type: Spontaneous
  Country: US (occurrence: US)
  Receive Date: 20161027
  Receipt Date: 20161118
  Transmission Date: 20170207
  Serious: No
  Sender: FDA-Public Use
  Company Number: US-009507513-1610USA014382

PATIENT
  Age: 23 Year
  Sex: Female
  Weight: 48.98 kg

DRUGS (1)
  1. NEXPLANON [Suspect]
     Active Substance: ETONOGESTREL
     Indication: CONTRACEPTION
     Dosage: 1 DF, UNK
     Route: 059
     Dates: start: 20160303, end: 20160528

REACTIONS (3)
  - Implant site infection [Recovered/Resolved]
  - Device expulsion [Unknown]
  - Wound [Recovered/Resolved]

NARRATIVE: CASE EVENT DATE: 2016
